FAERS Safety Report 25958130 (Version 1)
Quarter: 2025Q4

REPORT INFORMATION
  Report Type: Spontaneous
  Country: US (occurrence: US)
  Receive Date: 20251024
  Receipt Date: 20251024
  Transmission Date: 20260117
  Serious: Yes (Other)
  Sender: NOVARTIS
  Company Number: US-002147023-NVSC2025US161267

PATIENT
  Sex: Female

DRUGS (1)
  1. MEKINIST [Suspect]
     Active Substance: TRAMETINIB DIMETHYL SULFOXIDE
     Indication: Cranial nerve neoplasm benign
     Dosage: 0.5 MG, QD
     Route: 048
     Dates: start: 202508

REACTIONS (2)
  - Cranial nerve neoplasm benign [Unknown]
  - Malignant neoplasm progression [Unknown]
